FAERS Safety Report 8052780-4 (Version None)
Quarter: 2012Q1

REPORT INFORMATION
  Report Type: 
  Country: None (occurrence: None)
  Receive Date: 20120118
  Receipt Date: 20120113
  Transmission Date: 20120608
  Serious: Yes (Hospitalization)
  Sender: FDA-Public Use
  Company Number: PHHY2011MY52677

PATIENT
  Sex: Male
  Weight: 16 kg

DRUGS (2)
  1. EXJADE [Suspect]
     Dosage: 500 MG, DAILY
     Route: 048
     Dates: start: 20110527, end: 20120109
  2. EXJADE [Suspect]
     Indication: IRON OVERLOAD
     Dosage: 375 MG, DAILY
     Route: 048
     Dates: start: 20090227, end: 20110525

REACTIONS (8)
  - SEPSIS [None]
  - ABDOMINAL PAIN [None]
  - HAEMATEMESIS [None]
  - PYREXIA [None]
  - TACHYCARDIA [None]
  - ABNORMAL FAECES [None]
  - NAUSEA [None]
  - DEPRESSED LEVEL OF CONSCIOUSNESS [None]
